FAERS Safety Report 7769543-7 (Version None)
Quarter: 2011Q3

REPORT INFORMATION
  Report Type: 
  Country: None (occurrence: None)
  Receive Date: 20110922
  Receipt Date: 20110322
  Transmission Date: 20111222
  Serious: Yes (Hospitalization)
  Sender: FDA-Public Use
  Company Number: US-ASTRAZENECA-2011SE16021

PATIENT
  Age: 57 Year
  Sex: Male
  Weight: 72.6 kg

DRUGS (2)
  1. CELEXA [Concomitant]
     Indication: DEPRESSION
  2. SEROQUEL [Suspect]
     Indication: SLEEP DISORDER
     Route: 048
     Dates: start: 20100101

REACTIONS (2)
  - DRUG DOSE OMISSION [None]
  - DEPRESSION [None]
